FAERS Safety Report 17162568 (Version 1)
Quarter: 2019Q4

REPORT INFORMATION
  Report Type: Spontaneous
  Country: US (occurrence: US)
  Receive Date: 20191124
  Receipt Date: 20191124
  Transmission Date: 20200122
  Serious: No
  Sender: FDA-Public Use
  Company Number: None

PATIENT
  Age: 64 Year
  Sex: Female

DRUGS (1)
  1. COLISTIMETHATE [Suspect]
     Active Substance: COLISTIMETHATE SODIUM
     Indication: BRONCHIECTASIS
     Route: 055
     Dates: start: 20190219

REACTIONS (4)
  - Fatigue [None]
  - Cough [None]
  - Product dose omission [None]
  - Rhinorrhoea [None]

NARRATIVE: CASE EVENT DATE: 20191124
